FAERS Safety Report 13986806 (Version 3)
Quarter: 2017Q4

REPORT INFORMATION
  Report Type: Spontaneous
  Country: IT (occurrence: IT)
  Receive Date: 20170919
  Receipt Date: 20171030
  Transmission Date: 20180321
  Serious: Yes (Other)
  Sender: FDA-Public Use
  Company Number: IT-PFIZER INC-2017404128

PATIENT
  Age: 39 Year
  Sex: Male

DRUGS (7)
  1. LYRICA [Suspect]
     Active Substance: PREGABALIN
     Indication: PHANTOM PAIN
     Dosage: 4 DF, TOTAL
     Route: 048
     Dates: start: 20170902, end: 20170902
  2. PANTOPRAZOLE [Concomitant]
     Active Substance: PANTOPRAZOLE
     Indication: GASTRITIS
     Dosage: UNK
  3. JURNISTA [Suspect]
     Active Substance: HYDROMORPHONE HYDROCHLORIDE
     Indication: FRACTURE PAIN
     Dosage: 16 MG, TOTAL
     Route: 048
     Dates: start: 20170902, end: 20170902
  4. DEPAKIN CHRONO /00228502/ [Suspect]
     Active Substance: VALPROATE SODIUM
     Indication: POST-TRAUMATIC EPILEPSY
     Dosage: 2 DF, DAILY
     Route: 048
     Dates: start: 20170620
  5. OKI [Concomitant]
     Active Substance: KETOPROFEN LYSINE
     Indication: PAIN
     Dosage: UNK
     Route: 048
  6. JURNISTA [Suspect]
     Active Substance: HYDROMORPHONE HYDROCHLORIDE
     Dosage: 8 MG, TOTAL
     Route: 048
     Dates: start: 20170902, end: 20170902
  7. GRIFOXINA [Suspect]
     Active Substance: LEVETIRACETAM
     Indication: EPILEPSY
     Dosage: 3 DF, DAILY
     Route: 048
     Dates: start: 20170620, end: 20170901

REACTIONS (3)
  - Drug abuse [Recovered/Resolved]
  - Intentional self-injury [Recovered/Resolved]
  - Sopor [Recovered/Resolved]

NARRATIVE: CASE EVENT DATE: 20170902
